FAERS Safety Report 7719645-6 (Version None)
Quarter: 2011Q3

REPORT INFORMATION
  Report Type: 
  Country: None (occurrence: None)
  Receive Date: 20110830
  Receipt Date: 20110825
  Transmission Date: 20111222
  Serious: Yes (Hospitalization)
  Sender: FDA-Public Use
  Company Number: DE-ABBOTT-11P-062-0849664-00

PATIENT
  Age: 52 Year
  Sex: Female

DRUGS (1)
  1. VALPROATE SODIUM [Suspect]
     Indication: EPILEPSY
     Route: 048

REACTIONS (3)
  - DISORIENTATION [None]
  - THROMBOCYTOPENIA [None]
  - ANAEMIA [None]
